FAERS Safety Report 8580155-8 (Version None)
Quarter: 2012Q3

REPORT INFORMATION
  Report Type: 
  Country: None (occurrence: None)
  Receive Date: 20120808
  Receipt Date: 20120806
  Transmission Date: 20120928
  Serious: Yes (Hospitalization)
  Sender: FDA-Public Use
  Company Number: FR-BAYER-2012-080058

PATIENT
  Age: 56 Year
  Sex: Female

DRUGS (10)
  1. BISOPROLOL FUMARATE [Concomitant]
  2. ASPIRIN [Concomitant]
  3. CALCIPARINE [Concomitant]
  4. CIPROFLOXACIN HYDROCHLORIDE [Suspect]
     Indication: PROTEUS INFECTION
  5. VANCOMYCIN [Suspect]
     Indication: ENTEROCOCCAL INFECTION
     Dosage: 1 G, QD
     Dates: start: 20110711, end: 20110719
  6. LEVOTHYROXINE SODIUM [Concomitant]
  7. DEPAKENE [Concomitant]
  8. CIPROFLOXACIN HYDROCHLORIDE [Suspect]
     Indication: ENTEROCOCCAL INFECTION
     Dosage: 400 MG, BID
     Dates: start: 20110711, end: 20110719
  9. TEGRETOL [Concomitant]
  10. VANCOMYCIN [Suspect]
     Indication: PROTEUS INFECTION

REACTIONS (6)
  - RASH ERYTHEMATOUS [None]
  - HYPERKALAEMIA [None]
  - PRURITUS [None]
  - RASH PAPULAR [None]
  - RENAL FAILURE ACUTE [None]
  - HYPOTENSION [None]
